FAERS Safety Report 24910342 (Version 1)
Quarter: 2025Q1

REPORT INFORMATION
  Report Type: Report from Study
  Country: AT (occurrence: AT)
  Receive Date: 20250131
  Receipt Date: 20250131
  Transmission Date: 20250408
  Serious: No
  Sender: BAUSCH AND LOMB
  Company Number: DE-AMGEN-DEUSP2024255744

PATIENT
  Age: 57 Year
  Sex: Female

DRUGS (3)
  1. AZATHIOPRINE [Suspect]
     Active Substance: AZATHIOPRINE
     Indication: Serpiginous choroiditis
     Route: 065
  2. ADALIMUMAB [Concomitant]
     Active Substance: ADALIMUMAB
     Indication: Serpiginous choroiditis
  3. METHOTREXATE [Concomitant]
     Active Substance: METHOTREXATE
     Indication: Serpiginous choroiditis

REACTIONS (2)
  - Panic attack [Unknown]
  - Paraesthesia [Unknown]
